FAERS Safety Report 4595862-1 (Version None)
Quarter: 2005Q1

REPORT INFORMATION
  Report Type: 
  Country: None (occurrence: None)
  Receive Date: 20050302
  Receipt Date: 20050223
  Transmission Date: 20050727
  Serious: Yes (Hospitalization)
  Sender: FDA-Public Use
  Company Number: 200511499US

PATIENT
  Age: 72 Year
  Sex: Female

DRUGS (10)
  1. LOVENOX [Suspect]
     Indication: CEREBROVASCULAR ACCIDENT
  2. MONOPRIL [Concomitant]
     Dosage: DOSE: UNK
  3. NEURONTIN [Concomitant]
     Dosage: DOSE: UNK
  4. PROTONIX [Concomitant]
     Dosage: DOSE: UNK
  5. NIFEREX [Concomitant]
     Dosage: DOSE: UNK
  6. ZOCOR [Concomitant]
     Dosage: DOSE: UNK
  7. TYLENOL (CAPLET) [Concomitant]
     Dosage: DOSE: UNK
  8. LORTAB [Concomitant]
     Dosage: DOSE: UNK
  9. COUMADIN [Concomitant]
  10. PLAVIX [Concomitant]
     Dosage: DOSE: UNK

REACTIONS (5)
  - HAEMARTHROSIS [None]
  - HEMIPLEGIA [None]
  - ISCHAEMIC STROKE [None]
  - OPERATIVE HAEMORRHAGE [None]
  - POST PROCEDURAL HAEMORRHAGE [None]
